FAERS Safety Report 14101391 (Version 1)
Quarter: 2017Q4

REPORT INFORMATION
  Report Type: Spontaneous
  Country: US (occurrence: US)
  Receive Date: 20171017
  Receipt Date: 20171017
  Transmission Date: 20180321
  Serious: Yes (Life-Threatening, Hospitalization)
  Sender: FDA-Public Use
  Company Number: None

PATIENT
  Age: 57 Year
  Sex: Female
  Weight: 149.1 kg

DRUGS (2)
  1. LEFLUNOMIDE. [Suspect]
     Active Substance: LEFLUNOMIDE
     Indication: SARCOIDOSIS
  2. LEFLUNOMIDE. [Suspect]
     Active Substance: LEFLUNOMIDE
     Indication: ARTHRITIS

REACTIONS (6)
  - Swollen tongue [None]
  - Angioedema [None]
  - Pharyngeal oedema [None]
  - Swelling face [None]
  - Swelling [None]
  - Lip swelling [None]

NARRATIVE: CASE EVENT DATE: 20171016
